FAERS Safety Report 14770988 (Version 2)
Quarter: 2019Q1

REPORT INFORMATION
  Report Type: Spontaneous
  Country: US (occurrence: US)
  Receive Date: 20180417
  Receipt Date: 20190325
  Transmission Date: 20190417
  Serious: No
  Sender: FDA-Public Use
  Company Number: US-ALLERGAN-1663545US

PATIENT
  Age: 72 Year
  Sex: Female

DRUGS (9)
  1. LUMIGAN [Suspect]
     Active Substance: BIMATOPROST
     Indication: GLAUCOMA
     Dosage: 2 GTT, QHS
     Route: 047
     Dates: start: 2010
  2. DORZOLAMIDE [Concomitant]
     Active Substance: DORZOLAMIDE
     Dosage: UNK, QAM
     Route: 047
  3. GLIMEPIRIDE. [Concomitant]
     Active Substance: GLIMEPIRIDE
     Indication: DIABETES MELLITUS
     Dosage: 40 MG, QAM
  4. PRIMIDONE. [Concomitant]
     Active Substance: PRIMIDONE
     Dosage: UNK, QAM
     Route: 047
  5. HUMULIN N INSULIN [Concomitant]
     Indication: DIABETES MELLITUS
  6. LOVASTATIN. [Concomitant]
     Active Substance: LOVASTATIN
     Indication: BLOOD CHOLESTEROL INCREASED
     Dosage: 10 MG, UNK
  7. BENAZEPRIL [Concomitant]
     Active Substance: BENAZEPRIL HYDROCHLORIDE
     Indication: HYPERTENSION
     Dosage: 20 MG, BID
  8. OXYBUTYNIN. [Concomitant]
     Active Substance: OXYBUTYNIN CHLORIDE
     Indication: MICTURITION URGENCY
     Dosage: UNK
  9. METFORMIN [Concomitant]
     Active Substance: METFORMIN HYDROCHLORIDE
     Indication: DIABETES MELLITUS
     Dosage: 1000 MG, BID

REACTIONS (7)
  - Retinal disorder [Not Recovered/Not Resolved]
  - Product dose omission [Unknown]
  - Intraocular pressure increased [Unknown]
  - Hypertension [Not Recovered/Not Resolved]
  - Stress [Not Recovered/Not Resolved]
  - Road traffic accident [Unknown]
  - Glaucoma [Not Recovered/Not Resolved]

NARRATIVE: CASE EVENT DATE: 20170812
